FAERS Safety Report 9526075 (Version 1)
Quarter: 2013Q3

REPORT INFORMATION
  Report Type: Spontaneous
  Country: US (occurrence: None)
  Receive Date: 20130913
  Receipt Date: 20130913
  Transmission Date: 20140515
  Serious: Yes (Other)
  Sender: FDA-Public Use
  Company Number: None

PATIENT
  Age: 73 Year
  Sex: Female

DRUGS (2)
  1. AFINITOR [Suspect]
     Dosage: 10 MG DAILY ORAL
     Route: 048
     Dates: start: 20130824, end: 20130828
  2. AFINITOR [Suspect]
     Dosage: 10 MG DAILY ORAL
     Route: 048
     Dates: start: 20130824, end: 20130828

REACTIONS (4)
  - Abasia [None]
  - Local swelling [None]
  - Muscular weakness [None]
  - Pain in extremity [None]
